FAERS Safety Report 24930444 (Version 6)
Quarter: 2025Q2

REPORT INFORMATION
  Report Type: Spontaneous
  Country: US (occurrence: US)
  Receive Date: 20250205
  Receipt Date: 20250416
  Transmission Date: 20250716
  Serious: Yes (Hospitalization, Other)
  Sender: LUNDBECK
  Company Number: US-LUNDBECK-DKLU4010244

PATIENT
  Age: 50 Year
  Sex: Female
  Weight: 45.45 kg

DRUGS (1)
  1. NORTHERA [Suspect]
     Active Substance: DROXIDOPA
     Indication: Orthostatic hypotension
     Dosage: 100 MILLIGRAM
     Route: 048

REACTIONS (12)
  - General physical health deterioration [Not Recovered/Not Resolved]
  - Loss of consciousness [Unknown]
  - Hallucination [Unknown]
  - Fatigue [Not Recovered/Not Resolved]
  - Erythema [Unknown]
  - Product dose omission issue [Not Recovered/Not Resolved]
  - Hypertension [Unknown]
  - Poor quality sleep [Unknown]
  - Gait disturbance [Unknown]
  - Malaise [Unknown]
  - Heart rate decreased [Unknown]
  - Anxiety [Unknown]

NARRATIVE: CASE EVENT DATE: 20240301
